FAERS Safety Report 21966995 (Version 2)
Quarter: 2023Q1

REPORT INFORMATION
  Report Type: Report from Study
  Country: JP (occurrence: JP)
  Receive Date: 20230208
  Receipt Date: 20230321
  Transmission Date: 20230417
  Serious: Yes (Life-Threatening, Hospitalization, Other)
  Sender: FDA-Public Use
  Company Number: JP-ASTELLAS-2023JP001493

PATIENT
  Age: 73 Year
  Sex: Male

DRUGS (9)
  1. ENFORTUMAB VEDOTIN [Suspect]
     Active Substance: ENFORTUMAB VEDOTIN
     Indication: Transitional cell carcinoma
     Route: 065
     Dates: start: 20211209, end: 20220218
  2. ENFORTUMAB VEDOTIN [Suspect]
     Active Substance: ENFORTUMAB VEDOTIN
     Route: 065
     Dates: start: 20220311, end: 20220311
  3. GLYCOSAMINOGLYCANS [Concomitant]
     Active Substance: GLYCOSAMINOGLYCANS
     Indication: Skin disorder prophylaxis
     Dosage: APPROPRIATE AMOUNT, TWICE DAILY
     Route: 050
     Dates: start: 20211209
  4. GLYCOSAMINOGLYCANS [Concomitant]
     Active Substance: GLYCOSAMINOGLYCANS
     Indication: Skin disorder prophylaxis
     Dosage: APPROPRIATE AMOUNT, TWICE DAILY
     Route: 050
     Dates: start: 20220109
  5. GLYCOSAMINOGLYCANS [Concomitant]
     Active Substance: GLYCOSAMINOGLYCANS
     Indication: Skin disorder prophylaxis
     Dosage: APPROPRIATE AMOUNT, TWICE DAILY
     Route: 050
     Dates: start: 20220109
  6. AMINO ACIDS\DEXTROSE\ELECTROLYTES NOS\VITAMINS [Concomitant]
     Active Substance: AMINO ACIDS\DEXTROSE\ELECTROLYTES NOS\VITAMINS
     Indication: Decreased appetite
     Route: 065
     Dates: start: 20220320, end: 20220331
  7. ISOTONIC SODIUM CHLORIDE SOLUTION [Concomitant]
     Active Substance: SODIUM CHLORIDE
     Indication: Decreased appetite
     Route: 065
     Dates: start: 20220320, end: 20220320
  8. DECADRON [Concomitant]
     Active Substance: DEXAMETHASONE
     Indication: Malaise
     Route: 048
     Dates: start: 20220325
  9. URSO [Concomitant]
     Active Substance: URSODIOL
     Indication: Congestive hepatopathy
     Dosage: UNK UNK, UNKNOWN FREQ.
     Route: 065

REACTIONS (6)
  - Malaise [Recovering/Resolving]
  - Decreased appetite [Recovering/Resolving]
  - Congestive hepatopathy [Recovered/Resolved]
  - Pericarditis malignant [Recovering/Resolving]
  - Paralysis recurrent laryngeal nerve [Not Recovered/Not Resolved]
  - Inappropriate schedule of product administration [Unknown]

NARRATIVE: CASE EVENT DATE: 20220304
